FAERS Safety Report 14360749 (Version 1)
Quarter: 2018Q1

REPORT INFORMATION
  Report Type: Spontaneous
  Country: US (occurrence: US)
  Receive Date: 20180106
  Receipt Date: 20180106
  Transmission Date: 20180509
  Serious: No
  Sender: FDA-Public Use
  Company Number: US-MYLANLABS-2017M1074447

PATIENT
  Sex: Female

DRUGS (1)
  1. AMNESTEEM [Suspect]
     Active Substance: ISOTRETINOIN
     Indication: ACNE
     Dosage: 40 MG, QD
     Dates: start: 20170424, end: 20171001

REACTIONS (3)
  - Hepatic enzyme increased [Unknown]
  - Abdominal pain upper [Unknown]
  - Cholelithiasis [Unknown]
